FAERS Safety Report 24551974 (Version 1)
Quarter: 2024Q4

REPORT INFORMATION
  Report Type: Spontaneous
  Country: US (occurrence: US)
  Receive Date: 20241026
  Receipt Date: 20241026
  Transmission Date: 20250115
  Serious: Yes (Death, Other)
  Sender: MERCK
  Company Number: US-009507513-2410USA010313

PATIENT
  Sex: Male

DRUGS (2)
  1. BRIDION [Suspect]
     Active Substance: SUGAMMADEX
     Dosage: 2 MILLIGRAM/KILOGRAM, ONCE
  2. ONDANSETRON [Concomitant]
     Active Substance: ONDANSETRON
     Dosage: 4 MILLIGRAM
     Route: 042

REACTIONS (6)
  - Sepsis [Fatal]
  - Compartment syndrome [Fatal]
  - Cardiac arrest [Recovered/Resolved]
  - Endotracheal intubation [Unknown]
  - Intensive care [Unknown]
  - Bradycardia [Recovered/Resolved]
